FAERS Safety Report 8931713 (Version 2)
Quarter: 2012Q4

REPORT INFORMATION
  Report Type: 
  Country: IT (occurrence: FR)
  Receive Date: 20121128
  Receipt Date: 20121214
  Transmission Date: 20130627
  Serious: Yes (Hospitalization)
  Sender: FDA-Public Use
  Company Number: FR-FRI-1000040607

PATIENT
  Age: 68 Year
  Sex: Male

DRUGS (11)
  1. NEBIVOLOL [Suspect]
     Dosage: 5 mg
     Route: 048
  2. ADRIBLASTINE [Suspect]
     Indication: LUNG NEOPLASM MALIGNANT
     Dosage: 71 mg
     Route: 042
     Dates: start: 20120917, end: 20120917
  3. ENDOXAN [Suspect]
     Indication: LUNG NEOPLASM MALIGNANT
     Dosage: 1600 mg
     Route: 042
     Dates: start: 20120917, end: 20120917
  4. CARBOPLATIN [Suspect]
     Indication: LUNG NEOPLASM MALIGNANT
     Dosage: 150 mg
     Route: 042
     Dates: start: 20120620, end: 20120820
  5. ETOPOPHOS [Suspect]
     Indication: LUNG NEOPLASM MALIGNANT
     Dosage: 160 mg
     Route: 042
     Dates: start: 20120620, end: 201209
  6. GLUCOPHAGE [Suspect]
     Dosage: 3000 mg
     Route: 048
  7. COVERSYL [Suspect]
     Dosage: 2.5 mg
  8. LERCAN [Suspect]
     Dosage: 5 mg
     Route: 048
  9. TAHOR [Suspect]
     Dosage: 10 mg
     Route: 048
  10. PLAVIX [Suspect]
     Dosage: 75 mg
     Route: 048
  11. NOVONORM [Suspect]
     Dosage: 2 mg
     Route: 048

REACTIONS (2)
  - Syncope [Recovered/Resolved]
  - Sinus arrhythmia [Recovered/Resolved]
